FAERS Safety Report 18487682 (Version 1)
Quarter: 2020Q4

REPORT INFORMATION
  Report Type: Spontaneous
  Country: JP (occurrence: JP)
  Receive Date: 20201110
  Receipt Date: 20201110
  Transmission Date: 20210114
  Serious: Yes (Hospitalization, Other)
  Sender: FDA-Public Use
  Company Number: JP-SUNOVION-2020SUN003355

PATIENT
  Age: 45 Year
  Sex: Female
  Weight: 40 kg

DRUGS (5)
  1. LORAZEPAM. [Concomitant]
     Active Substance: LORAZEPAM
     Route: 065
  2. PENTOBARBITAL CALCIUM [Concomitant]
     Active Substance: PENTOBARBITAL CALCIUM
     Route: 065
  3. DULOXETINE HYDROCHLORIDE. [Concomitant]
     Active Substance: DULOXETINE HYDROCHLORIDE
     Dosage: 1000 MG
     Route: 065
  4. LUNESTA [Suspect]
     Active Substance: ESZOPICLONE
     Dosage: 36 MG, QD
     Route: 048
  5. CLOXAZOLAM [Concomitant]
     Active Substance: CLOXAZOLAM
     Dosage: 12 MG
     Route: 065

REACTIONS (2)
  - Altered state of consciousness [Recovered/Resolved]
  - Intentional overdose [Unknown]
